FAERS Safety Report 12639748 (Version 1)
Quarter: 2016Q3

REPORT INFORMATION
  Report Type: Spontaneous
  Country: US (occurrence: US)
  Receive Date: 20160810
  Receipt Date: 20160810
  Transmission Date: 20161109
  Serious: No
  Sender: FDA-Public Use
  Company Number: GXBR2015US002656

PATIENT
  Sex: Male
  Weight: 82.86 kg

DRUGS (1)
  1. CLOBETASOL PROPIONATE. [Suspect]
     Active Substance: CLOBETASOL PROPIONATE
     Indication: MYCOSIS FUNGOIDES
     Dosage: UNK DF, UNK
     Route: 061
     Dates: start: 20151111, end: 20151124

REACTIONS (1)
  - Drug ineffective [Recovered/Resolved]
